FAERS Safety Report 9469891 (Version 1)
Quarter: 2013Q3

REPORT INFORMATION
  Report Type: Spontaneous
  Country: US (occurrence: None)
  Receive Date: 20130820
  Receipt Date: 20130820
  Transmission Date: 20140515
  Serious: Yes (Hospitalization)
  Sender: FDA-Public Use
  Company Number: None

PATIENT
  Age: 84 Year
  Sex: Male
  Weight: 66.4 kg

DRUGS (1)
  1. LENALIDOMIDE [Suspect]
     Indication: PLASMA CELL MYELOMA
     Route: 048
     Dates: start: 20120509, end: 20120626

REACTIONS (7)
  - Jaundice [None]
  - Hepatotoxicity [None]
  - Transaminases increased [None]
  - International normalised ratio abnormal [None]
  - Faeces pale [None]
  - Hyperbilirubinaemia [None]
  - Chromaturia [None]
